FAERS Safety Report 6037964-9 (Version None)
Quarter: 2009Q1

REPORT INFORMATION
  Report Type: 
  Country: None (occurrence: None)
  Receive Date: 20090114
  Receipt Date: 20090114
  Transmission Date: 20090719
  Serious: Yes (Life-Threatening, Disabling, Other)
  Sender: FDA-Public Use
  Company Number: None

PATIENT
  Sex: Male
  Weight: 63.5036 kg

DRUGS (6)
  1. SEROQUEL [Suspect]
     Indication: BRAIN INJURY
     Dosage: DAILY
     Dates: start: 19930101, end: 20080101
  2. SEROQUEL [Suspect]
     Indication: SCHIZOPHRENIA
     Dosage: DAILY
     Dates: start: 19930101, end: 20080101
  3. RESPORAL [Suspect]
     Indication: BRAIN INJURY
     Dosage: DAILY
     Dates: start: 19930101, end: 20080101
  4. RESPORAL [Suspect]
     Indication: SCHIZOPHRENIA
     Dosage: DAILY
     Dates: start: 19930101, end: 20080101
  5. ZYPREXA [Suspect]
     Indication: BRAIN INJURY
     Dosage: DAILY
     Dates: start: 19930101, end: 20080101
  6. ZYPREXA [Suspect]
     Indication: SCHIZOPHRENIA
     Dosage: DAILY
     Dates: start: 19930101, end: 20080101

REACTIONS (5)
  - CEREBROVASCULAR ACCIDENT [None]
  - COMA [None]
  - DIABETES MELLITUS [None]
  - MALAISE [None]
  - THYROID DISORDER [None]
